FAERS Safety Report 5445478-X (Version None)
Quarter: 2007Q3

REPORT INFORMATION
  Report Type: 
  Country: None (occurrence: None)
  Receive Date: 20070906
  Receipt Date: 20070817
  Transmission Date: 20080115
  Serious: No
  Sender: FDA-Public Use
  Company Number: US-BOEHRINGER INGELHEIM PHARMACEUTICALS, INC.-2007-BP-19457BP

PATIENT
  Sex: Male
  Weight: 102.6 kg

DRUGS (6)
  1. FLOMAX [Suspect]
     Indication: BENIGN PROSTATIC HYPERPLASIA
     Route: 048
     Dates: start: 20050101
  2. LOVENOX [Concomitant]
     Indication: DEEP VEIN THROMBOSIS
  3. SAW PALMETTO [Concomitant]
  4. ALBUTEROL [Concomitant]
     Indication: DYSPNOEA
  5. CRESTOR [Concomitant]
     Indication: BLOOD CHOLESTEROL
  6. LIPITOR [Concomitant]
     Indication: BLOOD CHOLESTEROL

REACTIONS (3)
  - BALANCE DISORDER [None]
  - DIZZINESS [None]
  - SOMNOLENCE [None]
